FAERS Safety Report 4563285-7 (Version None)
Quarter: 2005Q1

REPORT INFORMATION
  Report Type: 
  Country: None (occurrence: None)
  Receive Date: 20050121
  Receipt Date: 20041230
  Transmission Date: 20050727
  Serious: Yes (Hospitalization)
  Sender: FDA-Public Use
  Company Number: A02200403968

PATIENT
  Age: 80 Year
  Sex: Female

DRUGS (1)
  1. STILNOX           (ZOLPIDEM) [Suspect]
     Indication: SLEEP DISORDER
     Dosage: 10 MG OD
     Route: 048
     Dates: start: 20041001, end: 20041217

REACTIONS (4)
  - CEREBROVASCULAR ACCIDENT [None]
  - HEADACHE [None]
  - MEMORY IMPAIRMENT [None]
  - SPEECH DISORDER [None]
